FAERS Safety Report 20699669 (Version 1)
Quarter: 2022Q2

REPORT INFORMATION
  Report Type: Spontaneous
  Country: NL (occurrence: NL)
  Receive Date: 20220412
  Receipt Date: 20220412
  Transmission Date: 20220720
  Serious: Yes (Other)
  Sender: FDA-Public Use
  Company Number: NL-NOVARTISPH-NVSC2022NL078580

PATIENT
  Age: 60 Year
  Sex: Male

DRUGS (2)
  1. CARBAMAZEPINE [Suspect]
     Active Substance: CARBAMAZEPINE
     Indication: Product used for unknown indication
     Dosage: 500 MG, (200 MG IN THE MORNING AND 300 MG IN THE EVENING)
     Route: 065
  2. CARBAMAZEPINE [Suspect]
     Active Substance: CARBAMAZEPINE
     Dosage: 2.5 MG
     Route: 065

REACTIONS (6)
  - Brain injury [Unknown]
  - Dyschromatopsia [Unknown]
  - Somnambulism [Unknown]
  - Tinnitus [Unknown]
  - Diplopia [Unknown]
  - Dizziness [Unknown]
